FAERS Safety Report 7102878-X (Version None)
Quarter: 2010Q4

REPORT INFORMATION
  Report Type: 
  Country: None (occurrence: None)
  Receive Date: 20101115
  Receipt Date: 20101102
  Transmission Date: 20110411
  Serious: Yes (Hospitalization, Other)
  Sender: FDA-Public Use
  Company Number: US-ELI_LILLY_AND_COMPANY-US201003001701

PATIENT
  Sex: Female

DRUGS (11)
  1. FORTEO [Suspect]
     Indication: OSTEOPOROSIS
     Dosage: 20 UG, UNK
     Dates: start: 20090401
  2. FORTEO [Suspect]
     Dosage: 20 UG, DAILY (1/D)
  3. SYNTHROID [Concomitant]
  4. LABETALOL HCL [Concomitant]
  5. ISOSORBIDE DINITRATE [Concomitant]
  6. LIPITOR [Concomitant]
  7. NORVASC [Concomitant]
  8. PLAVIX [Concomitant]
  9. ASPIRIN [Concomitant]
  10. CALCIUM [Concomitant]
  11. VITAMIN D [Concomitant]

REACTIONS (5)
  - ANGINA PECTORIS [None]
  - CATHETERISATION CARDIAC [None]
  - CORONARY ARTERIAL STENT INSERTION [None]
  - DYSPNOEA EXERTIONAL [None]
  - EYE DISORDER [None]
